FAERS Safety Report 10676413 (Version 2)
Quarter: 2015Q1

REPORT INFORMATION
  Report Type: Spontaneous
  Country: US (occurrence: US)
  Receive Date: 20141226
  Receipt Date: 20150220
  Transmission Date: 20150720
  Serious: No
  Sender: FDA-Public Use
  Company Number: US-BAYER-2014-187279

PATIENT
  Age: 41 Year
  Sex: Female

DRUGS (1)
  1. FINACEA [Suspect]
     Active Substance: AZELAIC ACID
     Indication: ROSACEA
     Dosage: DAILY DOSE 15 %
     Route: 061
     Dates: start: 20141105, end: 20141107

REACTIONS (4)
  - Rash [None]
  - Drug intolerance [None]
  - Erythema [Recovered/Resolved]
  - Ocular hyperaemia [Recovered/Resolved]
